FAERS Safety Report 8480391-5 (Version None)
Quarter: 2012Q3

REPORT INFORMATION
  Report Type: 
  Country: None (occurrence: None)
  Receive Date: 20120702
  Receipt Date: 20120618
  Transmission Date: 20120928
  Serious: Yes (Hospitalization, Other)
  Sender: FDA-Public Use
  Company Number: NO-ROCHE-1082408

PATIENT
  Sex: Male

DRUGS (2)
  1. MABTHERA [Suspect]
     Dosage: GIVEN AFTER 2 MONTHS FROM THE EVENT
  2. MABTHERA [Suspect]
     Indication: RHEUMATOID ARTHRITIS
     Route: 042
     Dates: start: 20070601

REACTIONS (6)
  - DIARRHOEA [None]
  - HYPOGAMMAGLOBULINAEMIA [None]
  - PNEUMONIA [None]
  - STENOTROPHOMONAS INFECTION [None]
  - NEUTROPENIA [None]
  - SINUSITIS [None]
